FAERS Safety Report 16095696 (Version 1)
Quarter: 2019Q1

REPORT INFORMATION
  Report Type: Report from Study
  Country: US (occurrence: US)
  Receive Date: 20190320
  Receipt Date: 20190320
  Transmission Date: 20190418
  Serious: Yes (Hospitalization)
  Sender: FDA-Public Use
  Company Number: US-JNJFOC-20190324973

PATIENT
  Age: 76 Year
  Sex: Male

DRUGS (11)
  1. VENTOLIN [Concomitant]
     Active Substance: ALBUTEROL SULFATE
  2. TAMSULOSIN [Concomitant]
     Active Substance: TAMSULOSIN
  3. IMBRUVICA [Suspect]
     Active Substance: IBRUTINIB
     Indication: CHRONIC LYMPHOCYTIC LEUKAEMIA
     Route: 048
     Dates: start: 20181205
  4. ISOSORBIDE. [Concomitant]
     Active Substance: ISOSORBIDE
  5. NADOLOL. [Concomitant]
     Active Substance: NADOLOL
  6. FUROSEMIDE. [Concomitant]
     Active Substance: FUROSEMIDE
  7. DOXYCYCLINE. [Concomitant]
     Active Substance: DOXYCYCLINE
  8. LACTULOSE. [Concomitant]
     Active Substance: LACTULOSE
  9. ASPIRIN. [Concomitant]
     Active Substance: ASPIRIN
  10. LANSOPRAZOLE. [Concomitant]
     Active Substance: LANSOPRAZOLE
  11. ABACAVIR. [Concomitant]
     Active Substance: ABACAVIR

REACTIONS (1)
  - Haematochezia [Recovering/Resolving]

NARRATIVE: CASE EVENT DATE: 20190227
